FAERS Safety Report 10967278 (Version 1)
Quarter: 2015Q1

REPORT INFORMATION
  Report Type: Spontaneous
  Country: FR (occurrence: FR)
  Receive Date: 20150330
  Receipt Date: 20150330
  Transmission Date: 20150721
  Serious: Yes (Hospitalization)
  Sender: FDA-Public Use
  Company Number: FR-ASTRAZENECA-2015SE27487

PATIENT
  Age: 15338 Day
  Sex: Female

DRUGS (6)
  1. PLAQUENIL [Concomitant]
     Active Substance: HYDROXYCHLOROQUINE SULFATE
  2. LIDOCAINE AGUETTANT [Suspect]
     Active Substance: LIDOCAINE
     Indication: LOCAL ANAESTHESIA
     Dosage: 10 MG/ML ; ONCE/SINGLE ADMINISTRATION
     Route: 045
     Dates: start: 20140703, end: 20140703
  3. PREVISCAN [Concomitant]
     Active Substance: FLUINDIONE
     Indication: ANTIPHOSPHOLIPID SYNDROME
  4. CELLCEPT [Concomitant]
     Active Substance: MYCOPHENOLATE MOFETIL\MYCOPHENOLATE MOFETIL HYDROCHLORIDE
  5. MIDAZOLAM [Suspect]
     Active Substance: MIDAZOLAM\MIDAZOLAM HYDROCHLORIDE
     Route: 042
     Dates: start: 20140703, end: 20140703
  6. XYLOCAINE NEBULIZATION [Suspect]
     Active Substance: LIDOCAINE HYDROCHLORIDE
     Indication: LOCAL ANAESTHESIA
     Route: 065
     Dates: start: 20140703, end: 20140703

REACTIONS (6)
  - Hypotension [Recovered/Resolved]
  - Chest pain [Unknown]
  - Vomiting projectile [Recovered/Resolved]
  - Malaise [Recovered/Resolved]
  - Burning sensation [Unknown]
  - Heart rate increased [Unknown]

NARRATIVE: CASE EVENT DATE: 20140703
